FAERS Safety Report 6539206-4 (Version None)
Quarter: 2010Q1

REPORT INFORMATION
  Report Type: 
  Country: None (occurrence: None)
  Receive Date: 20100115
  Receipt Date: 20100106
  Transmission Date: 20100710
  Serious: Yes (Other)
  Sender: FDA-Public Use
  Company Number: US-JNJFOC-20100104291

PATIENT
  Age: 64 Year
  Sex: Female
  Weight: 67.59 kg

DRUGS (7)
  1. EXTRA STRENGTH TYLENOL PM [Suspect]
     Indication: INSOMNIA
     Route: 048
  2. LISINOPRIL [Concomitant]
     Indication: HYPERTENSION
  3. PRAVASTATIN [Concomitant]
     Indication: BLOOD CHOLESTEROL ABNORMAL
  4. ASPIRIN [Concomitant]
     Indication: PROPHYLAXIS
  5. KLONOPIN [Concomitant]
     Indication: ANXIETY
  6. TRIAZOLAM [Concomitant]
     Indication: INSOMNIA
  7. CELEBREX [Concomitant]
     Indication: ARTHRITIS

REACTIONS (2)
  - BLOOD PRESSURE FLUCTUATION [None]
  - BLOOD PRESSURE INCREASED [None]
